FAERS Safety Report 12957942 (Version 1)
Quarter: 2016Q4

REPORT INFORMATION
  Report Type: Spontaneous
  Country: US (occurrence: US)
  Receive Date: 20161118
  Receipt Date: 20161118
  Transmission Date: 20170207
  Serious: No
  Sender: FDA-Public Use
  Company Number: US-AQUA PHARMACEUTICALS-2015AQU000048

PATIENT
  Age: 39 Year
  Sex: Male
  Weight: 72.56 kg

DRUGS (6)
  1. AMITRIPTYLINE [Concomitant]
     Active Substance: AMITRIPTYLINE
     Dosage: UNK
  2. FLUCONAZOLE. [Concomitant]
     Active Substance: FLUCONAZOLE
     Indication: SEBORRHOEIC DERMATITIS
     Dosage: UNK
  3. VERDESO [Suspect]
     Active Substance: DESONIDE
     Indication: SEBORRHOEIC DERMATITIS
     Dosage: UNK, QHS
     Route: 061
     Dates: start: 20151015
  4. ZEGERID                            /00661201/ [Concomitant]
     Active Substance: OMEPRAZOLE
     Dosage: UNK
  5. TEMAZEPAM. [Concomitant]
     Active Substance: TEMAZEPAM
     Dosage: UNK
  6. PROMISEB [Suspect]
     Active Substance: DEVICE
     Indication: SEBORRHOEIC DERMATITIS
     Dosage: UNK, QD ONCE DAILY
     Route: 061
     Dates: start: 20151015

REACTIONS (6)
  - Emotional distress [Unknown]
  - Product use issue [Unknown]
  - Application site erythema [Not Recovered/Not Resolved]
  - Skin exfoliation [Recovering/Resolving]
  - Petechiae [Unknown]
  - Application site exfoliation [None]

NARRATIVE: CASE EVENT DATE: 201510
